FAERS Safety Report 5550996-X (Version None)
Quarter: 2007Q4

REPORT INFORMATION
  Report Type: 
  Country: None (occurrence: None)
  Receive Date: 20071128
  Receipt Date: 20070927
  Transmission Date: 20080405
  Serious: Yes (Other)
  Sender: FDA-Public Use
  Company Number: 2006088372

PATIENT
  Age: 44 Year
  Sex: Male

DRUGS (1)
  1. LIPITOR [Suspect]
     Dosage: 10 MG (1 IN 1 D)
     Dates: start: 20040412, end: 20040428

REACTIONS (6)
  - AMNESIA [None]
  - DEPRESSION [None]
  - FATIGUE [None]
  - IRRITABILITY [None]
  - MYOPATHY [None]
  - NEUROPATHY PERIPHERAL [None]
